FAERS Safety Report 5123388-5 (Version None)
Quarter: 2006Q4

REPORT INFORMATION
  Report Type: 
  Country: None (occurrence: None)
  Receive Date: 20061005
  Receipt Date: 20060919
  Transmission Date: 20070319
  Serious: Yes (Hospitalization)
  Sender: FDA-Public Use
  Company Number: 8019057

PATIENT
  Age: 55 Year
  Sex: Female
  Weight: 80 kg

DRUGS (4)
  1. KEPPRA [Suspect]
     Indication: PARTIAL SEIZURES
     Dosage: 1500 MG /D PO
     Route: 048
     Dates: start: 20060101
  2. KEPPRA [Suspect]
     Indication: PARTIAL SEIZURES
     Dates: start: 20060918
  3. VALPROIC ACID [Suspect]
     Indication: PARTIAL SEIZURES
     Dosage: PO; A FEW YEARS
     Route: 048
  4. VALPROIC ACID [Suspect]
     Indication: PARTIAL SEIZURES
     Dosage: 2000 MG /D PO
     Route: 048
     Dates: start: 20060101

REACTIONS (2)
  - MUSCLE TWITCHING [None]
  - MYALGIA [None]
